FAERS Safety Report 10761464 (Version 1)
Quarter: 2015Q1

REPORT INFORMATION
  Report Type: Spontaneous
  Country: US (occurrence: None)
  Receive Date: 20150128
  Receipt Date: 20150128
  Transmission Date: 20150721
  Serious: Yes (Hospitalization)
  Sender: FDA-Public Use
  Company Number: 1422347

PATIENT
  Sex: Female

DRUGS (2)
  1. FUROSEMIDE. [Concomitant]
     Active Substance: FUROSEMIDE
  2. RITUXAN [Suspect]
     Active Substance: RITUXIMAB
     Indication: NON-HODGKIN^S LYMPHOMA

REACTIONS (4)
  - Pyrexia [None]
  - Drug administration error [None]
  - Hypotension [None]
  - Electrocardiogram abnormal [None]

NARRATIVE: CASE EVENT DATE: 2014
